FAERS Safety Report 10103190 (Version 1)
Quarter: 2014Q2

REPORT INFORMATION
  Report Type: Spontaneous
  Country: US (occurrence: US)
  Receive Date: 20140424
  Receipt Date: 20140424
  Transmission Date: 20141212
  Serious: No
  Sender: FDA-Public Use
  Company Number: US-BRISTOL-MYERS SQUIBB COMPANY-20168217

PATIENT
  Age: 81 Year
  Sex: Female
  Weight: 72.56 kg

DRUGS (9)
  1. ELIQUIS [Suspect]
  2. LIPITOR [Concomitant]
  3. ATIVAN [Concomitant]
  4. ADVAIR [Concomitant]
  5. SINGULAIR [Concomitant]
  6. ATENOLOL [Concomitant]
  7. OMEPRAZOLE [Concomitant]
  8. VITAMIN D [Concomitant]
  9. MULTIVITAMIN [Concomitant]

REACTIONS (1)
  - Vaginal haemorrhage [Unknown]
